FAERS Safety Report 4815435-2 (Version None)
Quarter: 2005Q4

REPORT INFORMATION
  Report Type: 
  Country: None (occurrence: None)
  Receive Date: 20051031
  Receipt Date: 20051021
  Transmission Date: 20060501
  Serious: Yes (Other)
  Sender: FDA-Public Use
  Company Number: PT-BOEHRINGER INGELHEIM PHARMACEUTICALS, INC.-2005-DE-04427PO

PATIENT
  Sex: Male
  Weight: 250 kg

DRUGS (3)
  1. ATROVENT [Suspect]
     Indication: CHRONIC OBSTRUCTIVE PULMONARY DISEASE
     Dosage: 0,4 MG/ML
     Route: 055
     Dates: end: 20050915
  2. FENITOINE [Suspect]
     Indication: EPILEPSY
  3. DIPHENILHIDANTOINE [Concomitant]
     Indication: EPILEPSY

REACTIONS (3)
  - COGNITIVE DETERIORATION [None]
  - DEMENTIA [None]
  - GENERAL PHYSICAL CONDITION ABNORMAL [None]
